FAERS Safety Report 25353638 (Version 1)
Quarter: 2025Q2

REPORT INFORMATION
  Report Type: Spontaneous
  Country: US (occurrence: None)
  Receive Date: 20250523
  Receipt Date: 20250523
  Transmission Date: 20250716
  Serious: Yes (Death)
  Sender: FDA-CTU
  Company Number: None

PATIENT
  Age: 65 Year
  Sex: Female
  Weight: 66.1 kg

DRUGS (9)
  1. CALASPARGASE PEGOL [Suspect]
     Active Substance: CALASPARGASE PEGOL
     Indication: Adenocarcinoma pancreas
     Route: 042
     Dates: start: 20250407, end: 20250501
  2. lipease-protease-amylase [Concomitant]
     Dates: start: 202407
  3. OLANZAPINE [Concomitant]
     Active Substance: OLANZAPINE
     Dates: start: 202408
  4. INSULIN LISPRO [Concomitant]
     Active Substance: INSULIN LISPRO
     Dates: start: 202401
  5. Pantoprazole (DR/EC) [Concomitant]
     Dates: start: 2023
  6. PROCHLORPERAZINE [Concomitant]
     Active Substance: PROCHLORPERAZINE
     Dates: start: 202408
  7. Sucralfate (100 mg/dl) [Concomitant]
     Dates: start: 202401
  8. Ursodlol [Concomitant]
     Dates: start: 202412
  9. ZOLEDRONIC ACID [Concomitant]
     Active Substance: ZOLEDRONIC ACID
     Dates: start: 202410

REACTIONS (1)
  - Disease progression [None]

NARRATIVE: CASE EVENT DATE: 20250520
